FAERS Safety Report 8586740-1 (Version None)
Quarter: 2012Q3

REPORT INFORMATION
  Report Type: 
  Country: None (occurrence: None)
  Receive Date: 20120810
  Receipt Date: 20120628
  Transmission Date: 20120928
  Serious: No
  Sender: FDA-Public Use
  Company Number: FR-009507513-1205FRA00012

PATIENT

DRUGS (1)
  1. TIMOLOL MALEATE [Suspect]
     Indication: GLAUCOMA
     Dosage: BID
     Route: 047
     Dates: start: 20120401

REACTIONS (5)
  - HAEMATOCHEZIA [None]
  - DIZZINESS [None]
  - CONJUNCTIVAL HAEMORRHAGE [None]
  - HAEMORRHOIDS [None]
  - INTENTIONAL OVERDOSE [None]
